FAERS Safety Report 16825491 (Version 1)
Quarter: 2019Q3

REPORT INFORMATION
  Report Type: Spontaneous
  Country: US (occurrence: US)
  Receive Date: 20190919
  Receipt Date: 20190919
  Transmission Date: 20191005
  Serious: No
  Sender: FDA-Public Use
  Company Number: US-BIOGEN-2019BI00786468

PATIENT
  Sex: Female

DRUGS (2)
  1. TYSABRI [Suspect]
     Active Substance: NATALIZUMAB
     Indication: MULTIPLE SCLEROSIS
     Route: 065
     Dates: start: 20160203, end: 20190802
  2. TYSABRI [Suspect]
     Active Substance: NATALIZUMAB
     Route: 065

REACTIONS (8)
  - Urinary incontinence [Unknown]
  - Asthenia [Unknown]
  - Decreased appetite [Unknown]
  - Dysphagia [Unknown]
  - Pain [Unknown]
  - Arthralgia [Unknown]
  - Back pain [Unknown]
  - Tremor [Unknown]
